FAERS Safety Report 7098137-4 (Version None)
Quarter: 2010Q4

REPORT INFORMATION
  Report Type: 
  Country: None (occurrence: None)
  Receive Date: 20101112
  Receipt Date: 20101109
  Transmission Date: 20110411
  Serious: Yes (Death, Hospitalization, Other)
  Sender: FDA-Public Use
  Company Number: PHHY2009CA07429

PATIENT
  Sex: Female

DRUGS (1)
  1. SANDOSTATIN LAR [Suspect]
     Indication: CARCINOID TUMOUR
     Dosage: 60 MG EVERY 2 WEEKS
     Route: 030
     Dates: start: 20090226, end: 20101102

REACTIONS (18)
  - ABDOMINAL DISTENSION [None]
  - ABSCESS [None]
  - ABSCESS DRAINAGE [None]
  - ARTHRALGIA [None]
  - COLECTOMY [None]
  - DIARRHOEA [None]
  - FATIGUE [None]
  - JEJUNOSTOMY [None]
  - JOINT STIFFNESS [None]
  - LETHARGY [None]
  - LIMB DISCOMFORT [None]
  - MALIGNANT NEOPLASM PROGRESSION [None]
  - MUSCULOSKELETAL STIFFNESS [None]
  - OEDEMA PERIPHERAL [None]
  - PAIN [None]
  - RASH [None]
  - SEPSIS [None]
  - WEIGHT DECREASED [None]
